FAERS Safety Report 7457698-3 (Version None)
Quarter: 2011Q2

REPORT INFORMATION
  Report Type: 
  Country: None (occurrence: None)
  Receive Date: 20110504
  Receipt Date: 20110428
  Transmission Date: 20111010
  Serious: Yes (Other)
  Sender: FDA-Public Use
  Company Number: BR-ROCHE-759267

PATIENT
  Age: 68 Year
  Sex: Female

DRUGS (5)
  1. FOLIC ACID [Concomitant]
     Route: 048
     Dates: start: 20100101
  2. NAPROXEN [Concomitant]
     Route: 048
     Dates: start: 20100101
  3. ACTEMRA [Suspect]
     Indication: RHEUMATOID ARTHRITIS
     Dosage: FORM: INFUSION, RECEIVED 8 INFUSIONS
     Route: 065
     Dates: start: 20100501, end: 20110205
  4. METHOTREXATE [Concomitant]
     Route: 048
     Dates: start: 20100101
  5. OMEPRAZOLE [Concomitant]
     Route: 048
     Dates: start: 20100101

REACTIONS (1)
  - POLYNEUROPATHY [None]
